FAERS Safety Report 5830388-6 (Version None)
Quarter: 2008Q3

REPORT INFORMATION
  Report Type: 
  Country: None (occurrence: None)
  Receive Date: 20080801
  Receipt Date: 20080723
  Transmission Date: 20090109
  Serious: Yes (Hospitalization, Other)
  Sender: FDA-Public Use
  Company Number: BR-ABBOTT-08P-020-0459405-00

PATIENT
  Sex: Male
  Weight: 44 kg

DRUGS (5)
  1. HUMIRA [Suspect]
     Indication: JUVENILE ARTHRITIS
     Route: 058
     Dates: start: 20030401, end: 20040101
  2. HUMIRA [Suspect]
     Dates: start: 20080301, end: 20080530
  3. KETOPROFEN [Concomitant]
     Indication: ANALGESIA
  4. KETOPROFEN [Concomitant]
     Indication: JUVENILE ARTHRITIS
  5. DIPYRONE (NOVALGINA) [Concomitant]
     Indication: PAIN

REACTIONS (11)
  - ANAEMIA [None]
  - DEVICE FAILURE [None]
  - DISLOCATION OF JOINT PROSTHESIS [None]
  - DIZZINESS [None]
  - FALL [None]
  - FEMUR FRACTURE [None]
  - JOINT ARTHROPLASTY [None]
  - PAIN [None]
  - PROSTHESIS IMPLANTATION [None]
  - RENAL FAILURE [None]
  - VOMITING [None]
